FAERS Safety Report 9210305 (Version 2)
Quarter: 2013Q2

REPORT INFORMATION
  Report Type: Spontaneous
  Country: US (occurrence: US)
  Receive Date: 20130404
  Receipt Date: 20130507
  Transmission Date: 20140414
  Serious: Yes (Other)
  Sender: FDA-Public Use
  Company Number: US-ELI_LILLY_AND_COMPANY-US201303008849

PATIENT
  Age: 51 Year
  Sex: Female
  Weight: 126.8 kg

DRUGS (12)
  1. HUMALOG LISPRO [Suspect]
     Indication: TYPE 1 DIABETES MELLITUS
     Dosage: 100 U, QD
     Route: 058
     Dates: start: 20130323
  2. LISINOPRIL [Concomitant]
  3. EFFEXOR [Concomitant]
  4. WELLBUTRIN [Concomitant]
  5. REMERON [Concomitant]
  6. COREG [Concomitant]
  7. ZOCOR [Concomitant]
  8. SINGULAR [Concomitant]
  9. AMBIEN [Concomitant]
  10. XANAX [Concomitant]
  11. AUGMENTIN                               /SCH/ [Concomitant]
  12. IMDUR [Concomitant]
     Dosage: UNK, UNKNOWN

REACTIONS (7)
  - Loss of consciousness [Recovered/Resolved]
  - Blood glucose fluctuation [Recovered/Resolved]
  - Blood glucose increased [Recovered/Resolved]
  - Cold sweat [Recovered/Resolved]
  - Adverse event [Recovered/Resolved]
  - Drug ineffective [Unknown]
  - Upper respiratory tract infection [Unknown]
